FAERS Safety Report 5630562-8 (Version None)
Quarter: 2008Q1

REPORT INFORMATION
  Report Type: 
  Country: None (occurrence: None)
  Receive Date: 20080219
  Receipt Date: 20080212
  Transmission Date: 20080703
  Serious: Yes (Death)
  Sender: FDA-Public Use
  Company Number: A0699234A

PATIENT
  Age: 69 Year
  Sex: Male

DRUGS (5)
  1. ADVAIR DISKUS 100/50 [Suspect]
     Indication: ASTHMA
     Route: 055
     Dates: end: 20040628
  2. PRILOSEC [Concomitant]
  3. VERAPAMIL [Concomitant]
  4. PREDNISONE TAB [Concomitant]
  5. ENALAPRIL MALEATE [Concomitant]

REACTIONS (8)
  - AGONAL RHYTHM [None]
  - ANOXIC ENCEPHALOPATHY [None]
  - CARDIAC ARREST [None]
  - COMA [None]
  - CYANOSIS [None]
  - ELECTROMECHANICAL DISSOCIATION [None]
  - LUNG HYPERINFLATION [None]
  - RESPIRATORY ARREST [None]
